FAERS Safety Report 9789719 (Version 1)
Quarter: 2013Q4

REPORT INFORMATION
  Report Type: Spontaneous
  Country: FR (occurrence: None)
  Receive Date: 20131227
  Receipt Date: 20131227
  Transmission Date: 20140711
  Serious: Yes (Life-Threatening, Other)
  Sender: FDA-Public Use
  Company Number: AUR-APL-2013-10684

PATIENT
  Age: 72 Year
  Sex: Female

DRUGS (14)
  1. METFORMIN (METFORMIN) [Suspect]
     Indication: TYPE 2 DIABETES MELLITUS
     Dosage: 1000MG (1000MG, 1 IN 1D) ORAL
     Route: 048
  2. ALLOPURINOL [Suspect]
     Indication: PRODUCT USED FOR UNKNOWN INDICATION
     Dosage: 200MG (200MG, 1 IN 1D) ORAL
     Route: 048
  3. CELIPROLOL [Suspect]
     Indication: HYPERTENSION
     Dosage: 400MG (200MG, 2 IN 1D) ORAL
     Route: 048
  4. OMEPRAZOLE (OMEPRAZOLE) [Suspect]
     Indication: PRODUCT USED FOR UNKNOWN INDICATION
     Route: 048
  5. REPAGLINIDE (REPAGLINIDE) [Suspect]
     Indication: TYPE 2 DIABETES MELLITUS
     Dosage: 6MG (2 MG, 3 IN 1 D) ORAL
     Route: 048
  6. LASILIX (FUROSEMIDE) [Suspect]
     Indication: PRODUCT USED FOR UNKNOWN INDICATION
     Route: 048
  7. STILNOX [Suspect]
     Indication: PRODUCT USED FOR UNKNOWN INDICATION
     Dosage: (10MG, 1 D) ORAL
     Route: 048
  8. JANUMET [Suspect]
     Indication: TYPE 2 DIABETES MELLITUS
     Dosage: 2 DOSAGE FORMS (1 DOSAGE FORMS, 2 IN
     Dates: start: 20130622
  9. LOXEN (NICARDIPINE HYDROCHLORIDE) SLOW RELEASE [Suspect]
     Indication: HYPERTENSION
  10. LOXEN (NICARDIPINE HYDROCHLORIDE) SLOW RELEASE [Suspect]
     Indication: HYPERTENSION
     Dosage: 2 DOSAGE FORMS (1 DOSAGE FORMS 2 IN 1 D) ORAL
     Route: 048
  11. LEVOTHYROXINE [Suspect]
     Indication: HYPOTHYROIDISM
     Dosage: 2 DOSAGE FORMS (1DOSAGE FORMS, 2 IN 1 D) ORAL
     Route: 048
  12. TARDYFERON [Suspect]
     Indication: PRODUCT USED FOR UNKNOWN INDICATION
  13. DAFALGAN [Suspect]
     Indication: PRODUCT USED FOR UNKNOWN INDICATION
     Dosage: 4GMS , 1GM 4 IN 1 DAY.
  14. DIFFU K [Suspect]
     Indication: PRODUCT USED FOR UNKNOWN INDICATION
     Dosage: 1200MG (600MG, 2 IN 1 D) ORAL
     Route: 048

REACTIONS (3)
  - Adenocarcinoma pancreas [None]
  - Metastases to liver [None]
  - Abdominal pain upper [None]
